FAERS Safety Report 24699251 (Version 1)
Quarter: 2024Q4

REPORT INFORMATION
  Report Type: Spontaneous
  Country: EC (occurrence: EC)
  Receive Date: 20241205
  Receipt Date: 20241205
  Transmission Date: 20250115
  Serious: Yes (Hospitalization, Other)
  Sender: ROCHE
  Company Number: EC-ROCHE-10000141889

PATIENT
  Age: 68 Year
  Sex: Male

DRUGS (10)
  1. TOCILIZUMAB [Suspect]
     Active Substance: TOCILIZUMAB
     Indication: COVID-19
     Route: 065
  2. COLISTIN [Concomitant]
     Active Substance: COLISTIN
  3. TIGECYCLINE [Concomitant]
     Active Substance: TIGECYCLINE
  4. MEROPENEM [Concomitant]
     Active Substance: MEROPENEM
  5. VORICONAZOLE [Concomitant]
     Active Substance: VORICONAZOLE
  6. nebulized amikacin [Concomitant]
  7. ENOXAPARIN [Concomitant]
     Active Substance: ENOXAPARIN
  8. COLCHICINE [Concomitant]
     Active Substance: COLCHICINE
  9. IVERMECTIN [Concomitant]
     Active Substance: IVERMECTIN
  10. ATORVASTATIN [Concomitant]
     Active Substance: ATORVASTATIN

REACTIONS (6)
  - Off label use [Unknown]
  - Klebsiella infection [Unknown]
  - Pseudomonas infection [Unknown]
  - Burkholderia cepacia complex infection [Unknown]
  - Candida infection [Unknown]
  - Aspergillus infection [Unknown]
